FAERS Safety Report 5319545-5 (Version None)
Quarter: 2007Q2

REPORT INFORMATION
  Report Type: 
  Country: None (occurrence: None)
  Receive Date: 20070508
  Receipt Date: 20070430
  Transmission Date: 20071010
  Serious: Yes (Other)
  Sender: FDA-Public Use
  Company Number: US-ELI_LILLY_AND_COMPANY-US200705000099

PATIENT
  Age: 76 Year
  Sex: Female

DRUGS (2)
  1. FORTEO [Suspect]
     Dosage: UNK, UNK
     Dates: start: 20060101
  2. ANTIBIOTICS [Concomitant]

REACTIONS (4)
  - CARDIAC DISORDER [None]
  - INJECTION SITE PAIN [None]
  - MUSCLE SPASMS [None]
  - WEIGHT DECREASED [None]
